FAERS Safety Report 6595233-2 (Version None)
Quarter: 2010Q1

REPORT INFORMATION
  Report Type: 
  Country: None (occurrence: None)
  Receive Date: 20100222
  Receipt Date: 20100212
  Transmission Date: 20100710
  Serious: Yes (Hospitalization)
  Sender: FDA-Public Use
  Company Number: US-ABBOTT-10P-163-0626035-00

PATIENT
  Sex: Male
  Weight: 64.468 kg

DRUGS (7)
  1. NIASPAN [Suspect]
     Indication: BLOOD CHOLESTEROL INCREASED
     Dosage: HELD SINCE JAN 2010
     Dates: start: 20070101
  2. LOVASTATIN [Concomitant]
     Indication: BLOOD CHOLESTEROL INCREASED
  3. SYNTHROID [Concomitant]
     Indication: HYPOTHYROIDISM
  4. VITAMIN D [Concomitant]
     Indication: VITAMIN D DEFICIENCY
  5. MAGNESIUM [Concomitant]
     Indication: VITAMIN SUPPLEMENTATION
  6. CLARITIN [Concomitant]
     Indication: HYPERSENSITIVITY
  7. FLONASE [Concomitant]
     Indication: HYPERSENSITIVITY

REACTIONS (5)
  - ANURIA [None]
  - BLOOD URINE PRESENT [None]
  - CYSTITIS [None]
  - RENAL FAILURE [None]
  - URETHRAL INJURY [None]
